FAERS Safety Report 15935198 (Version 1)
Quarter: 2019Q1

REPORT INFORMATION
  Report Type: Spontaneous
  Country: BR (occurrence: BR)
  Receive Date: 20190207
  Receipt Date: 20190207
  Transmission Date: 20190417
  Serious: Yes (Other)
  Sender: FDA-Public Use
  Company Number: PHHY2019BR027505

PATIENT
  Age: 68 Year
  Sex: Male
  Weight: 92 kg

DRUGS (5)
  1. DIOVAN HCT [Suspect]
     Active Substance: HYDROCHLOROTHIAZIDE\VALSARTAN
     Indication: BLOOD PRESSURE ABNORMAL
     Dosage: 2 DF, QD
     Route: 048
  2. GALVUS [Concomitant]
     Active Substance: VILDAGLIPTIN
     Indication: PRODUCT USED FOR UNKNOWN INDICATION
     Route: 065
  3. SERTRALINE [Concomitant]
     Active Substance: SERTRALINE HYDROCHLORIDE
     Indication: PRODUCT USED FOR UNKNOWN INDICATION
     Route: 065
  4. PANTOPRAZOLE [Concomitant]
     Active Substance: PANTOPRAZOLE
     Indication: PRODUCT USED FOR UNKNOWN INDICATION
     Route: 065
  5. CLOPIDOGREL [Concomitant]
     Active Substance: CLOPIDOGREL BISULFATE
     Indication: PRODUCT USED FOR UNKNOWN INDICATION
     Route: 065

REACTIONS (2)
  - Pain [Not Recovered/Not Resolved]
  - Osteitis deformans [Not Recovered/Not Resolved]

NARRATIVE: CASE EVENT DATE: 20180926
